FAERS Safety Report 23282578 (Version 1)
Quarter: 2023Q4

REPORT INFORMATION
  Report Type: Report from Study
  Country: CA (occurrence: CA)
  Receive Date: 20231211
  Receipt Date: 20231211
  Transmission Date: 20240110
  Serious: Yes (Hospitalization)
  Sender: FDA-Public Use
  Company Number: CA-SANDOZ-SDZ2023CA065455

PATIENT
  Sex: Female

DRUGS (1)
  1. FULVESTRANT [Suspect]
     Active Substance: FULVESTRANT
     Indication: Product used for unknown indication
     Dosage: 500 MG, OTHER(EVERY 28 DAYS, 2 X 250MG/5ML)
     Route: 065
     Dates: start: 20231127

REACTIONS (2)
  - Gait disturbance [Unknown]
  - Impaired quality of life [Unknown]
